FAERS Safety Report 9157726 (Version 3)
Quarter: 2013Q2

REPORT INFORMATION
  Report Type: Spontaneous
  Country: GB (occurrence: GB)
  Receive Date: 20130312
  Receipt Date: 20130506
  Transmission Date: 20140414
  Serious: Yes (Hospitalization)
  Sender: FDA-Public Use
  Company Number: GB-009507513-1303GBR003559

PATIENT
  Age: 24 Year
  Sex: Female

DRUGS (1)
  1. NEXPLANON [Suspect]
     Dosage: UNK
     Route: 059
     Dates: start: 20130117, end: 20130305

REACTIONS (14)
  - Intentional overdose [Unknown]
  - Local swelling [Unknown]
  - Erythema [Unknown]
  - Pruritus [Unknown]
  - Amnesia [Unknown]
  - Postpartum depression [Unknown]
  - Intentional self-injury [Unknown]
  - Confusional state [Unknown]
  - Feeling abnormal [Unknown]
  - Crying [Unknown]
  - Mood altered [Recovered/Resolved]
  - Stress [Unknown]
  - Anxiety [Unknown]
  - Suicidal ideation [Unknown]
